FAERS Safety Report 10503928 (Version 1)
Quarter: 2014Q4

REPORT INFORMATION
  Report Type: Spontaneous
  Country: US (occurrence: None)
  Receive Date: 20141007
  Receipt Date: 20141007
  Transmission Date: 20150528
  Serious: Yes (Other)
  Sender: FDA-Public Use
  Company Number: None

PATIENT
  Age: 50 Year
  Sex: Female
  Weight: 63.5 kg

DRUGS (3)
  1. ALBUTEROL INHALER [Suspect]
     Active Substance: ALBUTEROL
  2. CORTICOSTEROID [Suspect]
     Active Substance: CORTICOSTEROID NOS
  3. SEREVENT DISKUS [Suspect]
     Active Substance: SALMETEROL XINAFOATE
     Indication: ASTHMA

REACTIONS (7)
  - Product substitution issue [None]
  - Gastrointestinal disorder [None]
  - Candida infection [None]
  - Food allergy [None]
  - Drug ineffective [None]
  - Product quality issue [None]
  - Multiple allergies [None]
